FAERS Safety Report 10494013 (Version 1)
Quarter: 2014Q4

REPORT INFORMATION
  Report Type: Spontaneous
  Country: US (occurrence: US)
  Receive Date: 20141003
  Receipt Date: 20141003
  Transmission Date: 20150528
  Serious: Yes (Other)
  Sender: FDA-Public Use
  Company Number: US-BIOGENIDEC-2014BI101299

PATIENT
  Age: 61 Year

DRUGS (7)
  1. TRAZODONE [Concomitant]
     Active Substance: TRAZODONE HYDROCHLORIDE
  2. BACLOFEN. [Concomitant]
     Active Substance: BACLOFEN
  3. TOPIRAMATE. [Concomitant]
     Active Substance: TOPIRAMATE
  4. AMITRIPTYLINE [Concomitant]
     Active Substance: AMITRIPTYLINE
  5. BUPROPION [Concomitant]
     Active Substance: BUPROPION
  6. LAMOTRIGINE. [Concomitant]
     Active Substance: LAMOTRIGINE
  7. TECFIDERA [Suspect]
     Active Substance: DIMETHYL FUMARATE
     Indication: PRODUCT USED FOR UNKNOWN INDICATION

REACTIONS (5)
  - Depressed level of consciousness [Unknown]
  - Confusional state [Unknown]
  - Lethargy [Unknown]
  - Somnolence [Unknown]
  - Multiple drug therapy [Unknown]
